FAERS Safety Report 6519770-1 (Version None)
Quarter: 2009Q4

REPORT INFORMATION
  Report Type: 
  Country: None (occurrence: None)
  Receive Date: 20091228
  Receipt Date: 20091215
  Transmission Date: 20100525
  Serious: Yes (Death)
  Sender: FDA-Public Use
  Company Number: IT-PFIZER INC-2009310848

PATIENT
  Sex: Male

DRUGS (2)
  1. DOXORUBICIN HCL [Suspect]
  2. VINCRISTINE SULFATE [Suspect]

REACTIONS (1)
  - ACUTE MYOCARDIAL INFARCTION [None]
